FAERS Safety Report 16860813 (Version 5)
Quarter: 2020Q4

REPORT INFORMATION
  Report Type: Spontaneous
  Country: US (occurrence: US)
  Receive Date: 20190927
  Receipt Date: 20201207
  Transmission Date: 20210113
  Serious: Yes (Death, Other)
  Sender: FDA-Public Use
  Company Number: US-PFIZER INC-2019415853

PATIENT
  Age: 73 Year
  Sex: Female

DRUGS (1)
  1. XALKORI [Suspect]
     Active Substance: CRIZOTINIB
     Indication: LUNG NEOPLASM MALIGNANT
     Dosage: 200 MG, DAILY
     Route: 048

REACTIONS (11)
  - Cardiac failure congestive [Unknown]
  - Pleural effusion [Unknown]
  - Renal mass [Unknown]
  - Leukocytosis [Unknown]
  - Anaemia [Unknown]
  - Systemic lupus erythematosus [Unknown]
  - Hypertension [Unknown]
  - Death [Fatal]
  - Pulmonary embolism [Unknown]
  - Thrombocytosis [Unknown]
  - Illness [Unknown]

NARRATIVE: CASE EVENT DATE: 20201001
